FAERS Safety Report 23371126 (Version 1)
Quarter: 2024Q1

REPORT INFORMATION
  Report Type: Spontaneous
  Country: US (occurrence: US)
  Receive Date: 20240105
  Receipt Date: 20240105
  Transmission Date: 20240410
  Serious: Yes (Other)
  Sender: FDA-Public Use
  Company Number: US-GLAND PHARMA LIMITED-2023US004638

PATIENT
  Age: 49 Year
  Sex: Female

DRUGS (1)
  1. DEXMEDETOMIDINE HYDROCHLORIDE [Suspect]
     Active Substance: DEXMEDETOMIDINE HYDROCHLORIDE
     Indication: Agitation
     Dosage: UNK
     Route: 065

REACTIONS (4)
  - Torsade de pointes [Recovered/Resolved with Sequelae]
  - Electrocardiogram R on T phenomenon [Recovered/Resolved with Sequelae]
  - Cardiac arrest [Unknown]
  - Ventricular fibrillation [Unknown]
